FAERS Safety Report 25982129 (Version 1)
Quarter: 2025Q4

REPORT INFORMATION
  Report Type: Spontaneous
  Country: US (occurrence: US)
  Receive Date: 20251031
  Receipt Date: 20251031
  Transmission Date: 20260118
  Serious: No
  Sender: TOLMAR
  Company Number: US-Tolmar-TLM-2025-07965

PATIENT
  Sex: Female

DRUGS (2)
  1. ELIGARD [Suspect]
     Active Substance: LEUPROLIDE ACETATE
     Indication: Product used for unknown indication
     Dosage: NDC: 62935-461-50?SN: 3314947178278?GTIN: 00362935461500?DEC-2026; NOV-2026; NOV-2026
  2. DEVICE [Suspect]
     Active Substance: DEVICE
     Indication: Product used for unknown indication
     Dosage: NDC: 62935-461-50?SN: 3314947178278?GTIN: 00362935461500?DEC-2026; NOV-2026; NOV-2026

REACTIONS (1)
  - Occupational exposure to product [Unknown]
